FAERS Safety Report 6578295-8 (Version None)
Quarter: 2010Q1

REPORT INFORMATION
  Report Type: 
  Country: None (occurrence: None)
  Receive Date: 20100211
  Receipt Date: 20100204
  Transmission Date: 20100710
  Serious: Yes (Death)
  Sender: FDA-Public Use
  Company Number: B0631689A

PATIENT
  Sex: Female

DRUGS (6)
  1. ZEFIX [Suspect]
     Indication: ANTIVIRAL PROPHYLAXIS
     Dosage: 100MG PER DAY
     Route: 048
     Dates: start: 20020101, end: 20091201
  2. RITUXAN [Concomitant]
     Indication: LYMPHOMA
     Dosage: 600MG IN THE MORNING
     Dates: start: 20020901, end: 20090901
  3. CYCLOPHOSPHAMIDE [Concomitant]
     Route: 065
  4. ADRIACIN [Concomitant]
  5. ONCOVIN [Concomitant]
  6. PREDNISOLONE [Concomitant]
     Route: 065

REACTIONS (2)
  - DRUG RESISTANCE [None]
  - HEPATITIS FULMINANT [None]
